FAERS Safety Report 20035314 (Version 1)
Quarter: 2021Q4

REPORT INFORMATION
  Report Type: Spontaneous
  Country: US (occurrence: US)
  Receive Date: 20211104
  Receipt Date: 20211104
  Transmission Date: 20220303
  Serious: No
  Sender: FDA-Public Use
  Company Number: US-TAKEDA-2021TUS067652

PATIENT
  Sex: Female
  Weight: 57 kg

DRUGS (2)
  1. GAMMAGARD LIQUID [Suspect]
     Active Substance: HUMAN IMMUNOGLOBULIN G
     Indication: Immunodeficiency
     Dosage: 20 GRAM, 1/WEEK
     Route: 058
     Dates: start: 2017
  2. GAMMAGARD LIQUID [Suspect]
     Active Substance: HUMAN IMMUNOGLOBULIN G
     Dosage: 20 GRAM, MONTHLY
     Route: 042
     Dates: end: 202104

REACTIONS (2)
  - Therapy interrupted [Unknown]
  - Inappropriate schedule of product administration [Unknown]
